FAERS Safety Report 8150365-2 (Version None)
Quarter: 2012Q1

REPORT INFORMATION
  Report Type: 
  Country: None (occurrence: None)
  Receive Date: 20120220
  Receipt Date: 20120218
  Transmission Date: 20120608
  Serious: Yes (Other)
  Sender: FDA-Public Use
  Company Number: US-PFIZER INC-2012043766

PATIENT
  Sex: Female
  Weight: 78.458 kg

DRUGS (4)
  1. FLECAINIDE [Concomitant]
     Indication: ATRIAL FIBRILLATION
     Dosage: 100 MG, 2X/DAY
  2. CHANTIX [Suspect]
     Indication: SMOKING CESSATION THERAPY
     Dosage: 0.5 MG, 1X/DAY
     Route: 048
     Dates: start: 20120209, end: 20120218
  3. ASPIRIN [Concomitant]
     Indication: CARDIAC DISORDER
     Dosage: UNK
  4. ACEBUTOLOL [Concomitant]
     Indication: CARDIAC DISORDER
     Dosage: 200 MG, 2X/DAY

REACTIONS (9)
  - HEART RATE IRREGULAR [None]
  - CHEST DISCOMFORT [None]
  - HEADACHE [None]
  - BODY TEMPERATURE DECREASED [None]
  - CARDIAC FLUTTER [None]
  - BODY TEMPERATURE FLUCTUATION [None]
  - HYPOAESTHESIA [None]
  - MIGRAINE [None]
  - NAUSEA [None]
